FAERS Safety Report 25204501 (Version 1)
Quarter: 2025Q2

REPORT INFORMATION
  Report Type: Spontaneous
  Country: US (occurrence: US)
  Receive Date: 20250416
  Receipt Date: 20250416
  Transmission Date: 20250716
  Serious: Yes (Other)
  Sender: SANDOZ
  Company Number: US-SANDOZ-SDZ2025US022534

PATIENT
  Age: 46 Year
  Sex: Female

DRUGS (2)
  1. ARGATROBAN [Suspect]
     Active Substance: ARGATROBAN
     Indication: Heparin-induced thrombocytopenia
     Route: 065
  2. ARGATROBAN [Suspect]
     Active Substance: ARGATROBAN
     Indication: Anticoagulant therapy

REACTIONS (5)
  - Embolic stroke [Unknown]
  - Renal impairment [Unknown]
  - Hypoxia [Unknown]
  - Cerebral haemorrhage [Unknown]
  - Haemorrhage [Unknown]
